FAERS Safety Report 24455235 (Version 2)
Quarter: 2024Q4

REPORT INFORMATION
  Report Type: Report from Study
  Country: CN (occurrence: CN)
  Receive Date: 20241017
  Receipt Date: 20241018
  Transmission Date: 20250114
  Serious: No
  Sender: ROCHE
  Company Number: CN-ROCHE-3490676

PATIENT

DRUGS (7)
  1. RITUXIMAB [Suspect]
     Active Substance: RITUXIMAB
     Indication: Prophylaxis against transplant rejection
     Dosage: RITUXIMAB WAS GIVEN AT DOSE BETWEEN 200 AND 500 MG ABOUT 2 WEEKS
     Route: 065
  2. MYCOPHENOLATE MOFETIL [Suspect]
     Active Substance: MYCOPHENOLATE MOFETIL
     Indication: Prophylaxis against transplant rejection
     Dosage: INITIAL DOSE OF MYCOPHENOLATE MOFETIL WAS 1000 TO 1500 MG/D,
     Route: 048
  3. TACROLIMUS [Suspect]
     Active Substance: TACROLIMUS
     Indication: Prophylaxis against transplant rejection
     Route: 048
  4. PREDNISONE [Suspect]
     Active Substance: PREDNISONE
     Indication: Prophylaxis against transplant rejection
     Dosage: INITIAL DOSE OF PREDNISONE WAS 10 TO 20 MG/D, PREDNISONE WAS REDUCED FROM 0.5 MG/(KG /D), 5 MG TO 20
     Route: 048
  5. METHYLPREDNISOLONE [Suspect]
     Active Substance: METHYLPREDNISOLONE
     Indication: Prophylaxis against transplant rejection
     Route: 042
  6. METHYLPREDNISOLONE [Suspect]
     Active Substance: METHYLPREDNISOLONE
     Dosage: METHYLPREDNISOLONE IV DRIP 1 TO 3 DAYS AFTER SURGERY
     Route: 041
  7. BASILIXIMAB [Suspect]
     Active Substance: BASILIXIMAB
     Indication: Prophylaxis against transplant rejection
     Route: 065

REACTIONS (5)
  - Urinary tract infection [Unknown]
  - Pneumonia [Unknown]
  - Herpes zoster [Unknown]
  - BK virus infection [Unknown]
  - Off label use [Unknown]
